FAERS Safety Report 11744998 (Version 5)
Quarter: 2016Q1

REPORT INFORMATION
  Report Type: Report from Study
  Country: GB (occurrence: GB)
  Receive Date: 20151117
  Receipt Date: 20160218
  Transmission Date: 20160525
  Serious: Yes (Other)
  Sender: FDA-Public Use
  Company Number: GB-ROCHE-1659887

PATIENT
  Sex: Male

DRUGS (1)
  1. ESBRIET [Suspect]
     Active Substance: PIRFENIDONE
     Indication: IDIOPATHIC PULMONARY FIBROSIS
     Route: 048
     Dates: start: 20140701

REACTIONS (7)
  - Dysstasia [Unknown]
  - Fatigue [Unknown]
  - Drug ineffective [Unknown]
  - Product colour issue [Unknown]
  - Dizziness [Recovered/Resolved]
  - Dyspnoea [Unknown]
  - Nausea [Unknown]
